FAERS Safety Report 6241638-9 (Version None)
Quarter: 2009Q2

REPORT INFORMATION
  Report Type: 
  Country: None (occurrence: None)
  Receive Date: 20090623
  Receipt Date: 20041026
  Transmission Date: 20091009
  Serious: Yes (Hospitalization)
  Sender: FDA-Public Use
  Company Number: TR-ROCHE-597517

PATIENT
  Sex: Male

DRUGS (16)
  1. MYCOPHENOLATE MOFETIL [Suspect]
     Route: 048
     Dates: start: 20030728
  2. MYCOPHENOLATE MOFETIL [Suspect]
     Route: 048
     Dates: start: 20030729
  3. DACLIZUMAB [Suspect]
     Route: 042
     Dates: start: 20030728
  4. DACLIZUMAB [Suspect]
     Route: 042
     Dates: start: 20030811
  5. DACLIZUMAB [Suspect]
     Route: 042
     Dates: start: 20030908
  6. DACLIZUMAB [Suspect]
     Route: 042
     Dates: start: 20030922
  7. SIROLIMUS [Suspect]
     Route: 048
     Dates: start: 20030728
  8. ACETYLCYSTEINE [Concomitant]
     Route: 048
     Dates: start: 20030728
  9. FAMOTIDINE [Concomitant]
     Route: 048
     Dates: start: 20030728
  10. GLUCOCORTICOID NOS [Suspect]
     Dosage: DRUG REPORTED: GLUCOCORTICOSTEROID, FORM:VIAL
     Route: 042
     Dates: start: 20030728, end: 20030729
  11. HYDROTALCIT [Concomitant]
     Route: 048
     Dates: start: 20030728
  12. NYSTATINE [Concomitant]
     Route: 048
     Dates: start: 20030728
  13. SULFAMETHOXAZOLE AND TRIMETHOPRIM [Concomitant]
     Route: 048
     Dates: start: 20030728
  14. GLUCOCORTICOID NOS [Suspect]
     Dosage: DRUG REPORTED: GLUCOCORTICOSTEROID
     Route: 048
     Dates: start: 20030730
  15. GLUCOCORTICOID NOS [Suspect]
     Route: 048
     Dates: start: 20030803
  16. GLUCOCORTICOID NOS [Suspect]
     Route: 048
     Dates: start: 20030804

REACTIONS (1)
  - OSTEONECROSIS [None]
